FAERS Safety Report 9862346 (Version 1)
Quarter: 2014Q1

REPORT INFORMATION
  Report Type: Spontaneous
  Country: US (occurrence: None)
  Receive Date: 20140131
  Receipt Date: 20140131
  Transmission Date: 20141002
  Serious: Yes (Other)
  Sender: FDA-Public Use
  Company Number: None

PATIENT
  Sex: Female
  Weight: 59.88 kg

DRUGS (2)
  1. MONTELUKAST [Suspect]
     Indication: ASTHMA
  2. MONTELUKAST [Suspect]
     Indication: RHINITIS ALLERGIC

REACTIONS (1)
  - Drug ineffective [None]
